FAERS Safety Report 12706963 (Version 17)
Quarter: 2019Q3

REPORT INFORMATION
  Report Type: Spontaneous
  Country: US (occurrence: US)
  Receive Date: 20160901
  Receipt Date: 20190820
  Transmission Date: 20191004
  Serious: Yes (Congenital Anomaly, Other)
  Sender: FDA-Public Use
  Company Number: PHEH2016US021923

PATIENT
  Sex: Female

DRUGS (1)
  1. ZOFRAN ODT [Suspect]
     Active Substance: ONDANSETRON HYDROCHLORIDE
     Indication: FOETAL EXPOSURE DURING PREGNANCY
     Dosage: MOTHER DOSE: 8 MG QD
     Route: 064

REACTIONS (35)
  - Left-to-right cardiac shunt [Unknown]
  - Oropharyngeal pain [Unknown]
  - Pyrexia [Unknown]
  - Tonsillitis [Unknown]
  - Sleep apnoea syndrome [Unknown]
  - Arthralgia [Unknown]
  - Atrial septal defect [Unknown]
  - Injury [Unknown]
  - Eczema [Unknown]
  - Pharyngitis [Unknown]
  - Gait disturbance [Unknown]
  - Nasal congestion [Unknown]
  - Pulmonary valve incompetence [Unknown]
  - Dermatitis contact [Unknown]
  - Ocular hyperaemia [Unknown]
  - Snoring [Unknown]
  - Urine output decreased [Unknown]
  - Cardiac murmur [Unknown]
  - Dehydration [Unknown]
  - Conjunctivitis [Unknown]
  - Gastrooesophageal reflux disease [Unknown]
  - Vomiting [Unknown]
  - Foetal exposure during pregnancy [Unknown]
  - Adenoiditis [Unknown]
  - Ear infection [Unknown]
  - Rash [Unknown]
  - Upper respiratory tract infection [Unknown]
  - Ear pain [Unknown]
  - Pain in extremity [Unknown]
  - Otorrhoea [Unknown]
  - Cardiomegaly [Unknown]
  - Diarrhoea [Unknown]
  - Gastroenteritis [Unknown]
  - Jaundice [Unknown]
  - Molluscum contagiosum [Unknown]
